FAERS Safety Report 8525970-1 (Version None)
Quarter: 2012Q3

REPORT INFORMATION
  Report Type: 
  Country: None (occurrence: None)
  Receive Date: 20120720
  Receipt Date: 20100819
  Transmission Date: 20120928
  Serious: Yes (Death)
  Sender: FDA-Public Use
  Company Number: PHHY2010TH094284

PATIENT
  Sex: Male

DRUGS (1)
  1. TASIGNA [Suspect]
     Dosage: UNK UKN, UNK
     Dates: start: 20081118

REACTIONS (3)
  - PRODUCTIVE COUGH [None]
  - BRONCHIAL OBSTRUCTION [None]
  - DEATH [None]
